FAERS Safety Report 4887253-0 (Version None)
Quarter: 2005Q4

REPORT INFORMATION
  Report Type: 
  Country: None (occurrence: None)
  Receive Date: 20051220
  Receipt Date: 20050224
  Transmission Date: 20060501
  Serious: Yes (Other)
  Sender: FDA-Public Use
  Company Number: HQWYE787403MAR05

PATIENT
  Age: 41 Year
  Sex: Female
  Weight: 61.29 kg

DRUGS (9)
  1. EFFEXOR XR [Suspect]
     Dosage: 37.5 MG 1X PER 1 DAY, ORAL ; 75 MG 1X PER 1 DAY,ORAL ; 150 MG 1X PER 1 DAY, ORAL
     Route: 048
     Dates: start: 20040101, end: 20040101
  2. EFFEXOR XR [Suspect]
     Dosage: 37.5 MG 1X PER 1 DAY, ORAL ; 75 MG 1X PER 1 DAY,ORAL ; 150 MG 1X PER 1 DAY, ORAL
     Route: 048
     Dates: start: 20040101, end: 20040101
  3. EFFEXOR XR [Suspect]
     Dosage: 37.5 MG 1X PER 1 DAY, ORAL ; 75 MG 1X PER 1 DAY,ORAL ; 150 MG 1X PER 1 DAY, ORAL
     Route: 048
     Dates: start: 20040101, end: 20040801
  4. EFFEXOR XR [Suspect]
     Dosage: 225 MG 1X PER 1 DAY ; 150 MG 1X PER 1 DAY, ORAL ; 75 MG 1X PER 1 DAY, ORAL ; 37.5 MG 1X PER DAY, ORA
     Route: 048
     Dates: start: 20040101, end: 20040101
  5. EFFEXOR XR [Suspect]
     Dosage: 225 MG 1X PER 1 DAY ; 150 MG 1X PER 1 DAY, ORAL ; 75 MG 1X PER 1 DAY, ORAL ; 37.5 MG 1X PER DAY, ORA
     Route: 048
     Dates: start: 20040101, end: 20040101
  6. EFFEXOR XR [Suspect]
     Dosage: 225 MG 1X PER 1 DAY ; 150 MG 1X PER 1 DAY, ORAL ; 75 MG 1X PER 1 DAY, ORAL ; 37.5 MG 1X PER DAY, ORA
     Route: 048
     Dates: start: 20041001, end: 20040101
  7. EFFEXOR XR [Suspect]
     Dosage: 225 MG 1X PER 1 DAY ; 150 MG 1X PER 1 DAY, ORAL ; 75 MG 1X PER 1 DAY, ORAL ; 37.5 MG 1X PER DAY, ORA
     Route: 048
     Dates: start: 20040801, end: 20041001
  8. EFFEXOR XR [Suspect]
     Dosage: 37.5 MG 1X PER 2 DAY
     Dates: start: 20040101, end: 20041201
  9. EFFEXOR XR [Suspect]
     Dosage: 75 MG 1X PER 1 DAY, ORAL
     Route: 048
     Dates: start: 20041201

REACTIONS (4)
  - ARTHRALGIA [None]
  - DIZZINESS [None]
  - DRUG WITHDRAWAL SYNDROME [None]
  - NAUSEA [None]
